FAERS Safety Report 12872771 (Version 1)
Quarter: 2016Q4

REPORT INFORMATION
  Report Type: Report from Study
  Country: US (occurrence: US)
  Receive Date: 20161021
  Receipt Date: 20161021
  Transmission Date: 20170207
  Serious: Yes (Death)
  Sender: FDA-Public Use
  Company Number: US-PFIZER INC-2016486767

PATIENT

DRUGS (2)
  1. GEMCITABINE HYDROCHLORIDE. [Suspect]
     Active Substance: GEMCITABINE HYDROCHLORIDE
     Indication: PANCREATIC CARCINOMA METASTATIC
     Dosage: 800 MG/M2, CYCLIC
  2. OLAPARIB [Suspect]
     Active Substance: OLAPARIB
     Indication: PANCREATIC CARCINOMA METASTATIC
     Dosage: 50 MG, 2X/DAY CONTINUOUS
     Route: 048

REACTIONS (1)
  - Neutropenic sepsis [Fatal]
